FAERS Safety Report 8583171-5 (Version None)
Quarter: 2012Q3

REPORT INFORMATION
  Report Type: 
  Country: None (occurrence: None)
  Receive Date: 20120809
  Receipt Date: 20120803
  Transmission Date: 20120928
  Serious: No
  Sender: FDA-Public Use
  Company Number: US-TEVA-352465USA

PATIENT
  Sex: Female
  Weight: 140.74 kg

DRUGS (5)
  1. ESCITALOPRAM [Concomitant]
     Indication: DEPRESSION
  2. VYVANSE [Concomitant]
     Indication: ATTENTION DEFICIT/HYPERACTIVITY DISORDER
  3. DIPHENHYDRAMINE HCL [Concomitant]
     Indication: SOMNOLENCE
     Route: 048
  4. NUVIGIL [Suspect]
     Indication: NARCOLEPSY
     Route: 048
     Dates: start: 20120703
  5. LAMOTRIGINE [Concomitant]
     Indication: AFFECTIVE DISORDER

REACTIONS (11)
  - PARAESTHESIA [None]
  - FEELING HOT [None]
  - INSOMNIA [None]
  - ARTHRALGIA [None]
  - DYSPNOEA [None]
  - ASTHENIA [None]
  - FEELING ABNORMAL [None]
  - DYSPHAGIA [None]
  - YAWNING [None]
  - BACK DISORDER [None]
  - WEIGHT INCREASED [None]
